FAERS Safety Report 17558906 (Version 6)
Quarter: 2020Q2

REPORT INFORMATION
  Report Type: Report from Study
  Country: None (occurrence: US)
  Receive Date: 20200318
  Receipt Date: 20200625
  Transmission Date: 20200713
  Serious: Yes (Other)
  Sender: FDA-Public Use
  Company Number: US-ABBVIE-20K-163-3326536-00

PATIENT
  Sex: Female

DRUGS (2)
  1. HUMIRA [Suspect]
     Active Substance: ADALIMUMAB
     Indication: RHEUMATOID ARTHRITIS
     Dosage: CITRATE FREE
     Route: 058
     Dates: start: 20190530, end: 20200207
  2. HUMIRA [Suspect]
     Active Substance: ADALIMUMAB
     Route: 058
     Dates: start: 2020

REACTIONS (23)
  - Post procedural complication [Unknown]
  - Arthralgia [Not Recovered/Not Resolved]
  - Sinusitis [Unknown]
  - Grip strength decreased [Unknown]
  - Joint swelling [Not Recovered/Not Resolved]
  - Depression [Unknown]
  - Anxiety [Unknown]
  - Sinusitis [Recovered/Resolved]
  - Pain in extremity [Not Recovered/Not Resolved]
  - Joint stiffness [Unknown]
  - Rotator cuff syndrome [Not Recovered/Not Resolved]
  - Procedural pain [Recovering/Resolving]
  - Fatigue [Not Recovered/Not Resolved]
  - Peripheral swelling [Not Recovered/Not Resolved]
  - Urticaria [Recovered/Resolved]
  - Joint swelling [Unknown]
  - Musculoskeletal discomfort [Unknown]
  - Mobility decreased [Not Recovered/Not Resolved]
  - Carpal tunnel syndrome [Not Recovered/Not Resolved]
  - Therapeutic product effect incomplete [Unknown]
  - Joint injury [Unknown]
  - Pain [Not Recovered/Not Resolved]
  - Musculoskeletal disorder [Unknown]

NARRATIVE: CASE EVENT DATE: 2019
